FAERS Safety Report 6916655-3 (Version None)
Quarter: 2010Q3

REPORT INFORMATION
  Report Type: 
  Country: None (occurrence: None)
  Receive Date: 20100810
  Receipt Date: 20100804
  Transmission Date: 20110219
  Serious: Yes (Death, Hospitalization)
  Sender: FDA-Public Use
  Company Number: DE-ROCHE-716766

PATIENT
  Sex: Female

DRUGS (28)
  1. BEVACIZUMAB [Suspect]
     Indication: NON-SMALL CELL LUNG CANCER
     Dosage: FREQUENCY: DAY 1 EVERY 21 DAYS.
     Route: 042
     Dates: start: 20100610
  2. PEMETREXED [Suspect]
     Indication: NON-SMALL CELL LUNG CANCER
     Dosage: FORM: VIAL, FREQUENCY: DAY 1 EVERY 21 DAYS.
     Route: 042
     Dates: start: 20100610
  3. CISPLATIN [Suspect]
     Indication: NON-SMALL CELL LUNG CANCER
     Dosage: FREQUENCY: DAY 1 EVERY 21 DAYS.
     Route: 042
     Dates: start: 20100610
  4. MCP [Concomitant]
     Indication: NAUSEA
     Dates: start: 20100611
  5. LORAZEPAM [Concomitant]
     Indication: PAIN
     Dates: start: 20100613
  6. MORPHINE [Concomitant]
     Indication: PAIN
     Dates: start: 20100614
  7. SODIUM PICOSULFATE [Concomitant]
     Indication: CONSTIPATION
     Dates: start: 20100629
  8. FOLIC ACID [Concomitant]
     Dates: start: 20100601, end: 20100707
  9. VITAMIN B-12 [Concomitant]
     Dates: start: 20100610, end: 20100610
  10. DEXAMETHASONE [Concomitant]
     Dates: start: 20100630, end: 20100702
  11. LEVOTHYROXINE SODIUM [Concomitant]
  12. ESTRADIOL [Concomitant]
  13. BISOPROLOL [Concomitant]
     Dates: start: 20100512
  14. NOVALGIN [Concomitant]
     Dates: start: 20100518
  15. AMITRIPTYLINE HCL [Concomitant]
     Dates: start: 20100527
  16. NULYTELY [Concomitant]
     Dates: start: 20100521
  17. ACETYLSALICYLIC ACID SRT [Concomitant]
     Dates: start: 20100602
  18. PANTOZOL [Concomitant]
     Dates: start: 20100611
  19. TRAMAL [Concomitant]
     Dates: start: 20100611
  20. CIPRO [Concomitant]
     Dates: start: 20100610
  21. METAMIZOL [Concomitant]
     Dosage: DRUG REPORTED AS METAMIZOLE
     Dates: start: 20100613
  22. ONDANSETRON [Concomitant]
     Dates: start: 20100610
  23. KALINOR [Concomitant]
     Dates: start: 20100613
  24. HYDROMORPHONE HCL [Concomitant]
     Dates: start: 20100614
  25. CAPROS [Concomitant]
     Dates: start: 20100616
  26. LAXOBERAL [Concomitant]
     Dates: start: 20100629
  27. TEPILTA [Concomitant]
     Dates: start: 20100701, end: 20100701
  28. FRESUBIN [Concomitant]
     Dates: start: 20100630

REACTIONS (3)
  - COMA [None]
  - DEHYDRATION [None]
  - PNEUMONIA ASPIRATION [None]
